FAERS Safety Report 8776027 (Version 2)
Quarter: 2014Q2

REPORT INFORMATION
  Report Type: Spontaneous
  Country: US (occurrence: US)
  Receive Date: 20120910
  Receipt Date: 20140430
  Transmission Date: 20141212
  Serious: Yes (Hospitalization)
  Sender: FDA-Public Use
  Company Number: US-ACTELION-A-US2012-70763

PATIENT
  Age: 3 Year
  Sex: Male

DRUGS (3)
  1. TRACLEER [Suspect]
     Indication: PULMONARY ARTERIAL HYPERTENSION
     Dosage: 31.25 MG, BID
     Route: 048
     Dates: start: 201108
  2. TRACLEER [Suspect]
     Dosage: 62.5 MG, BID
     Route: 048
  3. SILDENAFIL [Concomitant]

REACTIONS (2)
  - Feeding tube complication [Recovered/Resolved]
  - Gastrointestinal tube insertion [Recovered/Resolved]
